FAERS Safety Report 10574744 (Version 2)
Quarter: 2014Q4

REPORT INFORMATION
  Report Type: Report from Study
  Country: US (occurrence: US)
  Receive Date: 20141110
  Receipt Date: 20141216
  Transmission Date: 20150529
  Serious: Yes (Hospitalization, Other)
  Sender: FDA-Public Use
  Company Number: US-BAXTER-2014BAX066888

PATIENT
  Age: 39 Year
  Sex: Female
  Weight: 77.11 kg

DRUGS (9)
  1. SOLU-MEDROL [Concomitant]
     Active Substance: METHYLPREDNISOLONE SODIUM SUCCINATE
     Indication: PREMEDICATION
     Route: 042
     Dates: start: 201409
  2. REQUIP [Concomitant]
     Active Substance: ROPINIROLE HYDROCHLORIDE
     Indication: PREMEDICATION
     Route: 048
     Dates: start: 201409
  3. GAMMAGARD LIQUID [Suspect]
     Active Substance: HUMAN IMMUNOGLOBULIN G
     Route: 042
     Dates: start: 201411
  4. NEUROTIN [Concomitant]
     Indication: MIGRAINE PROPHYLAXIS
     Route: 048
  5. IMITREX [Concomitant]
     Active Substance: SUMATRIPTAN\SUMATRIPTAN SUCCINATE
     Indication: MIGRAINE PROPHYLAXIS
     Route: 045
     Dates: start: 201409
  6. GAMMAGARD LIQUID [Suspect]
     Active Substance: HUMAN IMMUNOGLOBULIN G
     Indication: SELECTIVE IGG SUBCLASS DEFICIENCY
     Dosage: 45-60 GRAMS
     Route: 042
     Dates: start: 201408, end: 201411
  7. BUTALB/ACETAMINOPHEN/CAFF/COD [Concomitant]
     Indication: MIGRAINE PROPHYLAXIS
     Route: 048
     Dates: start: 201409
  8. ROBAXIN [Concomitant]
     Active Substance: METHOCARBAMOL
     Indication: PREMEDICATION
     Route: 048
     Dates: start: 201409
  9. BENADRYL [Concomitant]
     Active Substance: DIPHENHYDRAMINE HYDROCHLORIDE
     Indication: PREMEDICATION
     Route: 042
     Dates: start: 201409

REACTIONS (13)
  - Migraine [Recovered/Resolved]
  - General physical health deterioration [Not Recovered/Not Resolved]
  - Urinary incontinence [Recovered/Resolved]
  - Rash generalised [Recovered/Resolved]
  - Fatigue [Recovered/Resolved]
  - Blood urine present [Recovered/Resolved]
  - Rash pruritic [Recovered/Resolved]
  - Muscle tightness [Recovered/Resolved]
  - Abasia [Recovered/Resolved]
  - Lung disorder [Recovered/Resolved]
  - Muscle spasms [Recovered/Resolved]
  - Asthma [Recovered/Resolved]
  - Myalgia [Recovered/Resolved]

NARRATIVE: CASE EVENT DATE: 201408
